FAERS Safety Report 5422483-0 (Version None)
Quarter: 2007Q3

REPORT INFORMATION
  Report Type: 
  Country: None (occurrence: None)
  Receive Date: 20070822
  Receipt Date: 20070810
  Transmission Date: 20080115
  Serious: Yes (Hospitalization, Disabling, Other)
  Sender: FDA-Public Use
  Company Number: US-ROCHE-473699

PATIENT
  Age: 23 Year
  Sex: Female
  Weight: 54.4 kg

DRUGS (2)
  1. ACCUTANE [Suspect]
     Route: 048
     Dates: start: 19940101, end: 19940601
  2. ORTHO TRI-CYCLEN [Concomitant]

REACTIONS (15)
  - ABDOMINAL PAIN [None]
  - ANAEMIA [None]
  - BLOOD CHOLESTEROL INCREASED [None]
  - CROHN'S DISEASE [None]
  - HAEMATOCHEZIA [None]
  - ILEITIS [None]
  - INFLAMMATORY BOWEL DISEASE [None]
  - INTESTINAL HAEMORRHAGE [None]
  - INTESTINAL PERFORATION [None]
  - KIDNEY INFECTION [None]
  - MALNUTRITION [None]
  - PERITONITIS [None]
  - RECTAL HAEMORRHAGE [None]
  - RENAL ABSCESS [None]
  - WEIGHT DECREASED [None]
